FAERS Safety Report 7740429-7 (Version None)
Quarter: 2011Q3

REPORT INFORMATION
  Report Type: 
  Country: None (occurrence: None)
  Receive Date: 20110909
  Receipt Date: 20110830
  Transmission Date: 20111222
  Serious: Yes (Other)
  Sender: FDA-Public Use
  Company Number: US-BAYER-2010-006727

PATIENT
  Age: 17 Year
  Sex: Female
  Weight: 51.247 kg

DRUGS (11)
  1. DOXYCYCLINE HYCLATE [Concomitant]
     Dosage: UNK
     Dates: start: 20090401
  2. YASMIN [Suspect]
     Dosage: UNK
     Dates: start: 20061201, end: 20070501
  3. AVIANE-28 [Concomitant]
  4. YASMIN [Suspect]
     Indication: PRODUCT USED FOR UNKNOWN INDICATION
     Dosage: UNK
     Dates: start: 20060201, end: 20060501
  5. HYDROCODONE BITARTRATE [Concomitant]
     Indication: PAIN MANAGEMENT
     Dosage: UNK
     Dates: start: 20080204, end: 20080219
  6. NSAID'S [Concomitant]
     Dosage: UNK UNK, PRN
  7. AZITHROMYCIN [Concomitant]
     Dosage: 250 MG, UNK
  8. AMOXICILINA CLAV [Concomitant]
     Dosage: UNK
     Dates: start: 20090101
  9. PROMETHAZINE [Concomitant]
     Indication: NAUSEA
     Dosage: UNK
     Dates: start: 20080101, end: 20080219
  10. AMOXICILINA CLAV [Concomitant]
     Dosage: UNK
     Dates: start: 20100301
  11. ONDANSETRON [Concomitant]
     Indication: NAUSEA
     Dosage: UNK
     Dates: start: 20080123, end: 20080219

REACTIONS (7)
  - GALLBLADDER DISORDER [None]
  - CHOLECYSTITIS CHRONIC [None]
  - CHOLECYSTITIS ACUTE [None]
  - NAUSEA [None]
  - PAIN [None]
  - CHOLELITHIASIS [None]
  - ABDOMINAL PAIN [None]
